FAERS Safety Report 6983006-8 (Version None)
Quarter: 2010Q3

REPORT INFORMATION
  Report Type: 
  Country: None (occurrence: None)
  Receive Date: 20100914
  Receipt Date: 20100512
  Transmission Date: 20110219
  Serious: No
  Sender: FDA-Public Use
  Company Number: US-PFIZER INC-2010060709

PATIENT
  Sex: Female
  Weight: 55.329 kg

DRUGS (5)
  1. LYRICA [Suspect]
     Indication: ARTHRITIS
     Dosage: 25 MG, UNK
     Route: 048
     Dates: start: 20100511, end: 20100511
  2. VITAMIN D [Concomitant]
     Indication: ARTHRITIS
     Dosage: 50,000 IU, WEEKLY
  3. ACTONEL [Concomitant]
     Indication: ARTHRITIS
     Dosage: 70 MG, WEEKLY
     Route: 048
  4. HYZAAR [Concomitant]
     Indication: HYPERTENSION
     Dosage: UNK
  5. MOBIC [Concomitant]
     Indication: ARTHRITIS
     Dosage: UNK
     Dates: end: 20100510

REACTIONS (2)
  - SOMNOLENCE [None]
  - VERTIGO [None]
